FAERS Safety Report 11143527 (Version 3)
Quarter: 2015Q3

REPORT INFORMATION
  Report Type: Spontaneous
  Country: US (occurrence: US)
  Receive Date: 20150526
  Receipt Date: 20150707
  Transmission Date: 20151125
  Serious: Yes (Death, Hospitalization, Other)
  Sender: FDA-Public Use
  Company Number: US-009507513-1505USA012712

PATIENT
  Sex: Female

DRUGS (3)
  1. EMEND [Suspect]
     Active Substance: APREPITANT
     Indication: PROPHYLAXIS OF NAUSEA AND VOMITING
     Dosage: 125MG ON DAY 1 (TRIFOLD PACK, AS DIRECTED)
     Route: 048
  2. EMEND [Suspect]
     Active Substance: APREPITANT
     Dosage: 80MG ON DAY 2 AND 3 (TRIFOLD PACK, AS DIRECTED)
     Route: 048
  3. EMEND [Suspect]
     Active Substance: APREPITANT
     Dosage: UNK, PREVIOUS EXPOSURE
     Route: 048

REACTIONS (2)
  - Breast cancer metastatic [Fatal]
  - Adverse event [Unknown]
